FAERS Safety Report 7506503-5 (Version None)
Quarter: 2011Q2

REPORT INFORMATION
  Report Type: 
  Country: None (occurrence: None)
  Receive Date: 20110526
  Receipt Date: 20110315
  Transmission Date: 20111010
  Serious: No
  Sender: FDA-Public Use
  Company Number: US-BAYER-201040671NA

PATIENT
  Sex: Female

DRUGS (9)
  1. YAZ [Suspect]
     Indication: ACNE
  2. NAPROXEN (ALEVE) [Concomitant]
  3. DIFLUCAN [Concomitant]
     Dosage: 150 MG, UNK
     Route: 048
     Dates: start: 20040901
  4. ZITHROMAX [Concomitant]
     Dosage: 250 MG, UNK
  5. FLAGYL [Concomitant]
     Dosage: 250 MG, TID
  6. ORAL CONTRACEPTIVE NOS [Concomitant]
     Indication: CONTRACEPTION
     Dosage: UNK
     Dates: start: 20040901
  7. DROSPIRENONE AND ETHINYL ESTRADIOL [Suspect]
     Indication: ACNE
  8. YASMIN [Suspect]
     Indication: ACNE
     Route: 048
  9. AUGMENTIN [Concomitant]
     Dosage: 500 MG, UNK

REACTIONS (1)
  - INJURY [None]
